FAERS Safety Report 6746371-2 (Version None)
Quarter: 2010Q2

REPORT INFORMATION
  Report Type: 
  Country: None (occurrence: None)
  Receive Date: 20100528
  Receipt Date: 20100517
  Transmission Date: 20101027
  Serious: Yes (Other)
  Sender: FDA-Public Use
  Company Number: BE-ROCHE-686075

PATIENT
  Sex: Female
  Weight: 64 kg

DRUGS (17)
  1. ROACTEMRA [Suspect]
     Indication: RHEUMATOID ARTHRITIS
     Route: 042
     Dates: start: 20091101
  2. CELLCEPT [Concomitant]
     Dosage: FREQUENCY: DAILY
  3. ADVAGRAF [Concomitant]
     Dosage: FREQUENCY: DAILY
     Route: 048
  4. AMLODIPINE [Concomitant]
     Dosage: FREQUENCY: DAILY
     Route: 048
  5. METOPROLOL [Concomitant]
     Dosage: FREQUENCY: DAILY. DRUG REPORTED AS ZELOZOK
     Route: 048
  6. OMEPRAZOLE [Concomitant]
     Dosage: FREQUENCY: DAILY
     Route: 048
  7. PRAVASTATIN [Concomitant]
     Dosage: FREQUENCY: DAILY
     Route: 048
  8. ALDACTONE [Concomitant]
     Dosage: FREQUENCY: DAILY
     Route: 048
  9. TERAZOSIN HCL [Concomitant]
     Dosage: FREQUENCY: DAILY
     Route: 048
  10. ASPIRIN [Concomitant]
     Dosage: FREQUENCY: DAILY. DRUG REPORTED CARDIOASPIRINE
     Route: 048
  11. MEDROL [Concomitant]
     Dosage: FREQUENCY: DAILY
     Route: 048
  12. STILNOCT [Concomitant]
     Route: 048
  13. CALCIUM CARBONATE [Concomitant]
     Dosage: FREQUENCY: DAILY
     Route: 048
  14. LYRICA [Concomitant]
     Dosage: FREQUENCY: DAILY
     Route: 048
  15. ALENDRONIC ACID [Concomitant]
     Dosage: FREQUENCY: DAILY. DRUG REPORTED: ALENDRONATE
     Route: 048
  16. CHOLECALCIFEROL [Concomitant]
     Dosage: DRUG REPORTED: D- CUREL
     Route: 048
  17. XANAX [Concomitant]
     Route: 048

REACTIONS (2)
  - HOT FLUSH [None]
  - PRESYNCOPE [None]
